FAERS Safety Report 18769959 (Version 1)
Quarter: 2021Q1

REPORT INFORMATION
  Report Type: Report from Study
  Country: US (occurrence: US)
  Receive Date: 20210121
  Receipt Date: 20210121
  Transmission Date: 20210419
  Serious: Yes (Other)
  Sender: FDA-Public Use
  Company Number: US-JNJFOC-20201239209

PATIENT
  Age: 66 Year
  Sex: Male
  Weight: 102.15 kg

DRUGS (2)
  1. OPSUMIT [Suspect]
     Active Substance: MACITENTAN
     Indication: PRODUCT USED FOR UNKNOWN INDICATION
     Route: 065
  2. UPTRAVI [Suspect]
     Active Substance: SELEXIPAG
     Indication: PULMONARY ARTERIAL HYPERTENSION
     Route: 048

REACTIONS (5)
  - Arthralgia [Unknown]
  - Intervertebral disc operation [Unknown]
  - Hypoaesthesia [Unknown]
  - Adverse drug reaction [Unknown]
  - Neck pain [Unknown]
